FAERS Safety Report 9441566 (Version 2)
Quarter: 2013Q3

REPORT INFORMATION
  Report Type: Report from Study
  Country: BR (occurrence: BR)
  Receive Date: 20130805
  Receipt Date: 20130814
  Transmission Date: 20140515
  Serious: Yes (Death, Life-Threatening, Hospitalization, Other)
  Sender: FDA-Public Use
  Company Number: BR-ROCHE-1256537

PATIENT
  Age: 54 Year
  Sex: Female

DRUGS (13)
  1. RITUXIMAB [Suspect]
     Indication: B-CELL LYMPHOMA
     Dosage: TOTAL DOSE, 6 CYCLES
     Route: 065
  2. RITUXIMAB [Suspect]
     Route: 065
  3. RITUXIMAB [Suspect]
     Route: 065
  4. CYTARABINE [Suspect]
     Indication: B-CELL LYMPHOMA
     Route: 065
  5. CISPLATIN [Suspect]
     Indication: B-CELL LYMPHOMA
     Route: 065
  6. CYCLOPHOSPHAMIDE [Suspect]
     Indication: B-CELL LYMPHOMA
     Route: 065
  7. DOXORUBICIN [Suspect]
     Indication: B-CELL LYMPHOMA
     Route: 065
  8. VINCRISTINE [Suspect]
     Indication: B-CELL LYMPHOMA
     Route: 065
  9. PREDNISOLONE [Suspect]
     Indication: B-CELL LYMPHOMA
     Route: 065
  10. DAUNORUBICIN [Suspect]
     Indication: B-CELL LYMPHOMA
     Route: 065
  11. PREDNISONE [Suspect]
     Indication: B-CELL LYMPHOMA
     Route: 065
  12. DEXAMETHASONE [Suspect]
     Indication: B-CELL LYMPHOMA
     Route: 065
  13. LENALIDOMIDE [Suspect]
     Indication: B-CELL LYMPHOMA
     Route: 065

REACTIONS (9)
  - Death [Fatal]
  - B-cell lymphoma [Unknown]
  - Lymphadenopathy [Unknown]
  - B-cell lymphoma [Unknown]
  - Pancytopenia [Unknown]
  - Pneumonia [Unknown]
  - Anaemia [Unknown]
  - Bone marrow failure [Unknown]
  - Febrile neutropenia [Unknown]
